FAERS Safety Report 12130923 (Version 1)
Quarter: 2016Q1

REPORT INFORMATION
  Report Type: Spontaneous
  Country: US (occurrence: None)
  Receive Date: 20160229
  Receipt Date: 20160229
  Transmission Date: 20160526
  Serious: Yes (Life-Threatening, Hospitalization)
  Sender: FDA-Public Use
  Company Number: None

PATIENT
  Age: 65 Year
  Sex: Male
  Weight: 86 kg

DRUGS (6)
  1. MVI [Concomitant]
     Active Substance: VITAMINS
  2. ASCORBIC ACID. [Concomitant]
     Active Substance: ASCORBIC ACID
  3. RED YEAST RICE [Concomitant]
     Active Substance: DIETARY SUPPLEMENT
  4. COLESTIPOL [Concomitant]
     Active Substance: COLESTIPOL
  5. GLUCOSAMINE-CHONDROITIN [Concomitant]
     Active Substance: CHONDROITIN SULFATE (BOVINE)\GLUCOSAMINE SULFATE
  6. YERVOY [Suspect]
     Active Substance: IPILIMUMAB
     Indication: MALIGNANT MELANOMA STAGE III
     Route: 042
     Dates: start: 20160114

REACTIONS (2)
  - Cardiac arrest [None]
  - Acute myocardial infarction [None]

NARRATIVE: CASE EVENT DATE: 20160116
